FAERS Safety Report 5551919-X (Version None)
Quarter: 2007Q4

REPORT INFORMATION
  Report Type: 
  Country: None (occurrence: None)
  Receive Date: 20071212
  Receipt Date: 20071130
  Transmission Date: 20080405
  Serious: Yes (Other)
  Sender: FDA-Public Use
  Company Number: US-PFIZER INC-2007102695

PATIENT
  Age: 42 Year
  Sex: Female

DRUGS (6)
  1. MARAVIROC [Suspect]
     Dosage: DAILY DOSE:300MG
     Route: 048
  2. ABACAVIR [Suspect]
     Dosage: TEXT:600
     Route: 048
  3. FOSAMPRENAVIR [Suspect]
     Dosage: TEXT:1400
     Route: 048
  4. RITONAVIR [Suspect]
     Dosage: TEXT:200
     Route: 048
  5. DIDANOSINE [Suspect]
     Dosage: TEXT:400
  6. LAMIVUDINE + ZIDOVUDINE [Suspect]
     Dosage: TEXT:900
     Dates: start: 20070916, end: 20070921

REACTIONS (1)
  - ABORTION SPONTANEOUS [None]
